FAERS Safety Report 26126766 (Version 1)
Quarter: 2025Q4

REPORT INFORMATION
  Report Type: Spontaneous
  Country: US (occurrence: US)
  Receive Date: 20251205
  Receipt Date: 20251205
  Transmission Date: 20260117
  Serious: Yes (Other)
  Sender: AMGEN
  Company Number: US-AMGEN-USASP2025236142

PATIENT
  Age: 43 Year
  Sex: Female

DRUGS (4)
  1. ADALIMUMAB [Suspect]
     Active Substance: ADALIMUMAB
     Indication: Rheumatoid arthritis
     Dosage: UNK
     Route: 065
  2. DESMOPRESSIN [Concomitant]
     Active Substance: DESMOPRESSIN
     Dosage: UNK
     Route: 040
  3. METFORMIN [Concomitant]
     Active Substance: METFORMIN HYDROCHLORIDE
     Indication: Diabetes mellitus
  4. SEMAGLUTIDE [Concomitant]
     Active Substance: SEMAGLUTIDE
     Indication: Diabetes mellitus

REACTIONS (2)
  - Diabetes insipidus [Unknown]
  - Lymphocytic hypophysitis [Unknown]
